FAERS Safety Report 7691696-X (Version None)
Quarter: 2011Q3

REPORT INFORMATION
  Report Type: 
  Country: None (occurrence: None)
  Receive Date: 20110818
  Receipt Date: 20110802
  Transmission Date: 20111222
  Serious: Yes (Hospitalization)
  Sender: FDA-Public Use
  Company Number: US-GLAXOSMITHKLINE-A0874067A

PATIENT
  Age: 50 Year
  Sex: Male
  Weight: 134 kg

DRUGS (2)
  1. AVANDAMET [Suspect]
     Indication: DIABETES MELLITUS
     Route: 048
  2. AVANDIA [Suspect]
     Indication: DIABETES MELLITUS
     Dosage: 4MG TWICE PER DAY
     Route: 048
     Dates: start: 20020101, end: 20071201

REACTIONS (3)
  - EYE OEDEMA [None]
  - SILENT MYOCARDIAL INFARCTION [None]
  - RETINAL HAEMORRHAGE [None]
